FAERS Safety Report 9421122 (Version 1)
Quarter: 2013Q3

REPORT INFORMATION
  Report Type: Spontaneous
  Country: US (occurrence: US)
  Receive Date: 20130725
  Receipt Date: 20130725
  Transmission Date: 20140515
  Serious: Yes (Hospitalization)
  Sender: FDA-Public Use
  Company Number: PHHY2013US076439

PATIENT
  Age: 78 Year
  Sex: Female

DRUGS (14)
  1. OXALIPLATIN [Suspect]
     Indication: COLON CANCER STAGE II
     Dosage: 85 MG/M2, UNK
  2. 5-FLUOROURACIL [Suspect]
     Indication: COLON CANCER STAGE II
     Dosage: 400 MG/M2, UNK
  3. LEUCOVORIN CALCIUM [Suspect]
     Indication: COLON CANCER STAGE II
     Dosage: 400 MG/M2, UNK
  4. SERTRALINE [Concomitant]
     Dosage: 50 MG, UNK
     Route: 048
  5. LISINOPRIL [Concomitant]
     Dosage: 40 MG, UNK
     Route: 048
  6. ATENOLOL [Concomitant]
     Dosage: 50 MG, UNK
     Route: 048
  7. MULTIVITAMIN [Concomitant]
     Dosage: 1 DF, UNK
     Route: 048
  8. FOLIC ACID [Concomitant]
     Dosage: 0.4 MG, UNK
     Route: 048
  9. SIMVASTATIN [Concomitant]
     Dosage: 20 MG, UNK
     Route: 048
  10. WARFARIN [Concomitant]
     Dosage: 1 MG, UNK
     Route: 048
  11. MEGESTROL [Concomitant]
     Dosage: 800 MG, UNK
     Route: 048
  12. FERROUS FUMARATE [Concomitant]
     Dosage: 324 MG, UNK
     Route: 048
  13. ONDANSETRON [Concomitant]
  14. PROCHLORPERAZINE [Concomitant]

REACTIONS (19)
  - Organising pneumonia [Recovering/Resolving]
  - Disease progression [Recovering/Resolving]
  - General physical health deterioration [Recovering/Resolving]
  - Neutropenia [Recovered/Resolved]
  - Cough [Recovering/Resolving]
  - Nausea [Recovering/Resolving]
  - Dizziness [Recovering/Resolving]
  - Decreased appetite [Recovering/Resolving]
  - Asthenia [Recovering/Resolving]
  - Wheezing [Recovering/Resolving]
  - Vomiting [Recovering/Resolving]
  - Crepitations [Recovering/Resolving]
  - Infection [Recovering/Resolving]
  - Pleural effusion [Recovering/Resolving]
  - Rales [Recovering/Resolving]
  - Anaemia [Recovering/Resolving]
  - Thrombocytopenia [Recovering/Resolving]
  - Productive cough [Recovering/Resolving]
  - Lung infiltration [Recovering/Resolving]
